FAERS Safety Report 6207835-3 (Version None)
Quarter: 2009Q2

REPORT INFORMATION
  Report Type: 
  Country: None (occurrence: None)
  Receive Date: 20090522
  Receipt Date: 20090518
  Transmission Date: 20091009
  Serious: Yes (Other)
  Sender: FDA-Public Use
  Company Number: ADE2008-0337

PATIENT
  Age: 78 Year
  Sex: Male

DRUGS (4)
  1. CITALOPRAM HYDROBROMIDE [Suspect]
     Indication: EPILEPSY
     Dosage: 10MG - DAILY - PO
     Route: 048
     Dates: start: 20080422, end: 20080610
  2. DIAZEPAM [Concomitant]
  3. FELODIPINE [Concomitant]
  4. TEGRETOL [Concomitant]

REACTIONS (7)
  - COMPLEX PARTIAL SEIZURES [None]
  - DEPERSONALISATION [None]
  - HAEMORRHAGE [None]
  - HALLUCINATION, OLFACTORY [None]
  - MEMORY IMPAIRMENT [None]
  - PETIT MAL EPILEPSY [None]
  - TREMOR [None]
